FAERS Safety Report 14996841 (Version 1)
Quarter: 2018Q2

REPORT INFORMATION
  Report Type: Spontaneous
  Country: DE (occurrence: DE)
  Receive Date: 20180611
  Receipt Date: 20180611
  Transmission Date: 20180711
  Serious: Yes (Hospitalization, Other)
  Sender: FDA-Public Use
  Company Number: DE-PFIZER INC-2018231948

PATIENT
  Age: 60 Year
  Sex: Male

DRUGS (3)
  1. OXYCODONE [Concomitant]
     Active Substance: OXYCODONE
     Dosage: 5 MG, AS NEEDED
  2. TOPOTECAN HYDROCHLORIDE. [Suspect]
     Active Substance: TOPOTECAN HYDROCHLORIDE
     Dosage: UNK
     Route: 065
  3. ZOPICLONE [Concomitant]
     Active Substance: ZOPICLONE
     Dosage: 7.5 MG, 1X/DAY (7.5 MG, 0-0-0-1)

REACTIONS (1)
  - Cholestasis [Unknown]

NARRATIVE: CASE EVENT DATE: 20161107
